FAERS Safety Report 5131571-8 (Version None)
Quarter: 2006Q4

REPORT INFORMATION
  Report Type: 
  Country: None (occurrence: None)
  Receive Date: 20061020
  Receipt Date: 20061010
  Transmission Date: 20070319
  Serious: Yes (Death, Life-Threatening, Hospitalization)
  Sender: FDA-Public Use
  Company Number: FR-JNJFOC-20060806185

PATIENT
  Sex: Female

DRUGS (4)
  1. CAELYX [Suspect]
     Route: 042
  2. CAELYX [Suspect]
     Indication: OVARIAN CANCER
     Route: 042
  3. CARBOPLATIN [Suspect]
     Route: 042
  4. CARBOPLATIN [Suspect]
     Indication: OVARIAN CANCER
     Route: 042

REACTIONS (1)
  - SUBARACHNOID HAEMORRHAGE [None]
